FAERS Safety Report 6503725-7 (Version None)
Quarter: 2009Q4

REPORT INFORMATION
  Report Type: 
  Country: None (occurrence: None)
  Receive Date: 20091217
  Receipt Date: 20091210
  Transmission Date: 20100525
  Serious: Yes (Hospitalization)
  Sender: FDA-Public Use
  Company Number: PHHO2009NL14060

PATIENT
  Sex: Male

DRUGS (6)
  1. AFINITOR [Suspect]
     Indication: CARCINOID TUMOUR
     Dosage: DOUBLE BLIND
     Route: 048
  2. BLINDED NO TREATMENT RECEIVED NOMED [Suspect]
     Indication: CARCINOID TUMOUR
     Dosage: DOUBLE BLIND
     Route: 048
  3. BLINDED PLACEBO COMP-PLA+ [Suspect]
     Indication: CARCINOID TUMOUR
     Dosage: DOUBLE BLIND
     Route: 048
  4. RAD 666 [Suspect]
     Indication: CARCINOID TUMOUR
     Dosage: UNK
     Dates: start: 20090513, end: 20091112
  5. RAD 666 [Suspect]
     Dosage: UNK
     Dates: start: 20091204
  6. SANDOSTATIN LAR [Concomitant]
     Indication: CARCINOID TUMOUR

REACTIONS (1)
  - HAEMATURIA [None]
